FAERS Safety Report 6626822-4 (Version None)
Quarter: 2010Q1

REPORT INFORMATION
  Report Type: 
  Country: None (occurrence: None)
  Receive Date: 20100311
  Receipt Date: 20100309
  Transmission Date: 20100710
  Serious: Yes (Hospitalization)
  Sender: FDA-Public Use
  Company Number: US-ASTRAZENECA-2009SE19758

PATIENT
  Age: 15920 Day
  Sex: Male
  Weight: 127.9 kg

DRUGS (8)
  1. SEROQUEL [Suspect]
     Indication: DEPRESSION
     Route: 048
     Dates: start: 20040101, end: 20050101
  2. SEROQUEL [Suspect]
     Indication: INSOMNIA
     Route: 048
     Dates: start: 20040101, end: 20050101
  3. SEROQUEL [Suspect]
     Indication: BIPOLAR DISORDER
     Route: 048
     Dates: start: 20040101, end: 20050101
  4. ABILIFY [Concomitant]
     Indication: DEPRESSION
     Dates: start: 20050101
  5. RISPERDAL [Concomitant]
     Dates: start: 20050101
  6. ZYPREXA [Concomitant]
  7. SYMBYAX [Concomitant]
  8. TEGRETOL [Concomitant]
     Indication: DEPRESSION

REACTIONS (3)
  - OBESITY [None]
  - PROCEDURAL PAIN [None]
  - TYPE 2 DIABETES MELLITUS [None]
